FAERS Safety Report 7403015-4 (Version None)
Quarter: 2011Q1

REPORT INFORMATION
  Report Type: 
  Country: None (occurrence: None)
  Receive Date: 20110324
  Receipt Date: 20110311
  Transmission Date: 20110831
  Serious: Yes (Hospitalization)
  Sender: FDA-Public Use
  Company Number: 2011PROUSA00251

PATIENT
  Age: 85 Year
  Sex: Male
  Weight: 70.8 kg

DRUGS (11)
  1. MINERAL TAB [Concomitant]
  2. PREDNISONE [Concomitant]
  3. DILTIAZEM [Concomitant]
  4. HERBS [Concomitant]
  5. PROVENGE [Suspect]
     Indication: PROSTATE CANCER METASTATIC
     Dosage: 250 ML, SINGLE, INTRAVENOUS
     Route: 042
     Dates: start: 20110211, end: 20110211
  6. AMBIEN [Concomitant]
  7. METOPROLOL (METOPROLOL) [Concomitant]
  8. PLAVIX [Concomitant]
  9. PROVENGE [Suspect]
     Dosage: 250 ML, SINGLE, INTRAVENOUS
     Route: 042
     Dates: start: 20110225, end: 20110225
  10. ZOCOR [Concomitant]
  11. VITAMINS [Concomitant]

REACTIONS (1)
  - ATRIAL FIBRILLATION [None]
